FAERS Safety Report 15795830 (Version 1)
Quarter: 2019Q1

REPORT INFORMATION
  Report Type: Report from Study
  Country: AT (occurrence: AT)
  Receive Date: 20190107
  Receipt Date: 20190107
  Transmission Date: 20190417
  Serious: Yes (Hospitalization, Other)
  Sender: FDA-Public Use
  Company Number: AT-TEVA-2019-AT-995514

PATIENT
  Age: 78 Year
  Sex: Female
  Weight: 58 kg

DRUGS (36)
  1. PACLITAXEL. [Suspect]
     Active Substance: PACLITAXEL
     Indication: OVARIAN CANCER
     Route: 065
  2. BEVACIZUMAB. [Suspect]
     Active Substance: BEVACIZUMAB
     Indication: OVARIAN CANCER
     Route: 065
  3. SIMVASTATIN. [Concomitant]
     Active Substance: SIMVASTATIN
     Indication: HYPERCHOLESTEROLAEMIA
     Dosage: HYPERCHOLESTERINAEMIA; 0-0-0-1
     Route: 065
     Dates: start: 201502, end: 201505
  4. FOSTER [Concomitant]
     Active Substance: BECLOMETHASONE\FORMOTEROL
     Indication: ASTHMA
     Route: 065
     Dates: start: 201502, end: 201505
  5. NAVOBAN [Concomitant]
     Active Substance: TROPISETRON HYDROCHLORIDE
     Indication: PROPHYLAXIS OF NAUSEA AND VOMITING
     Route: 065
     Dates: start: 201506, end: 201506
  6. OXYGEN. [Concomitant]
     Active Substance: OXYGEN
     Indication: CHRONIC OBSTRUCTIVE PULMONARY DISEASE
     Route: 065
     Dates: start: 201505, end: 201505
  7. ZOFRAN [Concomitant]
     Active Substance: ONDANSETRON HYDROCHLORIDE
     Indication: PROPHYLAXIS OF NAUSEA AND VOMITING
     Dates: start: 201506, end: 201506
  8. LENDORM [Concomitant]
     Active Substance: BROTIZOLAM
     Indication: INSOMNIA
     Route: 065
     Dates: start: 201505, end: 201505
  9. NITROLINGUAL [Concomitant]
     Active Substance: NITROGLYCERIN
     Route: 065
     Dates: start: 201503, end: 201505
  10. PASPERTIN (AUSTRIA) [Concomitant]
     Indication: NAUSEA
     Route: 065
     Dates: start: 201511, end: 201602
  11. CLAVAMOX [Concomitant]
     Active Substance: AMOXICILLIN\CLAVULANATE POTASSIUM
     Indication: INFECTION
     Dosage: INFECTION; 1-0-1
     Route: 065
     Dates: start: 201502, end: 201502
  12. AGAFFIN [Concomitant]
     Indication: CONSTIPATION
     Route: 065
     Dates: start: 201502, end: 201503
  13. FOSTER [Concomitant]
     Active Substance: BECLOMETHASONE\FORMOTEROL
     Indication: CHRONIC OBSTRUCTIVE PULMONARY DISEASE
  14. AMLODIPIN [Concomitant]
     Active Substance: AMLODIPINE BESYLATE
     Route: 065
     Dates: start: 201502, end: 201702
  15. PASPERTIN (AUSTRIA) [Concomitant]
     Indication: VOMITING
     Route: 065
     Dates: start: 201601, end: 201601
  16. EUTHYROX [Concomitant]
     Active Substance: LEVOTHYROXINE SODIUM
     Route: 065
     Dates: start: 201503, end: 201702
  17. VESICARE [Concomitant]
     Active Substance: SOLIFENACIN SUCCINATE
     Indication: URINARY INCONTINENCE
     Route: 065
     Dates: start: 201502, end: 201503
  18. EMEND [Concomitant]
     Active Substance: APREPITANT
     Indication: VOMITING
  19. THROMBO ASS [Concomitant]
     Active Substance: ASPIRIN
     Indication: THROMBOSIS PROPHYLAXIS
     Route: 065
     Dates: start: 201502, end: 201505
  20. MOLAXOLE [Concomitant]
     Active Substance: POLYETHYLENE GLYCOL 3350\POTASSIUM CHLORIDE\SODIUM BICARBONATE\SODIUM CHLORIDE
     Indication: CONSTIPATION
     Route: 065
     Dates: start: 201502, end: 201503
  21. NEUROBION FORTE [Concomitant]
     Active Substance: CYANOCOBALAMIN\PYRIDOXINE HYDROCHLORIDE\THIAMINE DISULFIDE
     Indication: VITAMIN B COMPLEX DEFICIENCY
     Dosage: 1-1-1
     Route: 065
     Dates: start: 201512, end: 201601
  22. NOVALGIN (AUSTRIA) [Concomitant]
     Indication: NAUSEA
     Route: 065
     Dates: start: 201505, end: 201701
  23. SERACTIL [Concomitant]
     Active Substance: DEXIBUPROFEN
     Indication: PAIN
     Route: 065
     Dates: start: 201502, end: 201503
  24. CARBOPLATIN. [Suspect]
     Active Substance: CARBOPLATIN
     Indication: OVARIAN CANCER
     Route: 065
  25. GRANISETRON HYDROCHLORIDE. [Concomitant]
     Active Substance: GRANISETRON HYDROCHLORIDE
     Indication: NAUSEA
  26. MEXALEN [Concomitant]
     Active Substance: ACETAMINOPHEN
     Indication: PAIN
     Route: 065
     Dates: start: 201502, end: 201505
  27. GRANISETRON HYDROCHLORIDE. [Concomitant]
     Active Substance: GRANISETRON HYDROCHLORIDE
     Indication: VOMITING
     Route: 065
     Dates: start: 201502, end: 201507
  28. IRENAT [Concomitant]
     Active Substance: SODIUM PERCHLORATE
     Indication: HYPERTHYROIDISM
     Route: 065
     Dates: start: 201503, end: 201505
  29. CEOLAT [Concomitant]
     Indication: VOMITING
     Route: 065
     Dates: start: 201502, end: 201508
  30. AMLODIPIN [Concomitant]
     Active Substance: AMLODIPINE BESYLATE
     Indication: HYPERTENSION
     Route: 065
     Dates: start: 201503, end: 201505
  31. GABAPENTIN. [Concomitant]
     Active Substance: GABAPENTIN
     Route: 065
     Dates: start: 201503, end: 201505
  32. LOVENOX [Concomitant]
     Active Substance: ENOXAPARIN SODIUM
     Indication: THROMBOSIS PROPHYLAXIS
     Dosage: THROMBOSIS PROPHYLAXIS; 0-0-1?LOVENOX S.C.
     Route: 058
     Dates: start: 201502, end: 201502
  33. EUTHYROX [Concomitant]
     Active Substance: LEVOTHYROXINE SODIUM
     Indication: HYPOTHYROIDISM
     Route: 065
     Dates: start: 201502, end: 201503
  34. EMEND [Concomitant]
     Active Substance: APREPITANT
     Indication: NAUSEA
     Route: 065
     Dates: start: 201505, end: 201507
  35. SINGULAIR [Concomitant]
     Active Substance: MONTELUKAST SODIUM
     Indication: ASTHMA
     Dosage: ASTHMA BRONCHIALE; 1-0-0
     Route: 065
     Dates: start: 201502, end: 201702
  36. MOLAXOLE [Concomitant]
     Active Substance: POLYETHYLENE GLYCOL 3350\POTASSIUM CHLORIDE\SODIUM BICARBONATE\SODIUM CHLORIDE
     Route: 065
     Dates: start: 201503, end: 201702

REACTIONS (10)
  - Urinary tract infection bacterial [Recovered/Resolved]
  - Leukopenia [Recovered/Resolved]
  - Neutropenia [Recovered/Resolved]
  - Vomiting [Recovered/Resolved]
  - Anaemia [Recovered/Resolved]
  - Escherichia urinary tract infection [Recovered/Resolved]
  - Proteinuria [Recovered/Resolved]
  - Thrombocytopenia [Recovered/Resolved]
  - Thrombocytosis [Recovered/Resolved]
  - Abdominal pain [Recovered/Resolved]

NARRATIVE: CASE EVENT DATE: 20150203
